FAERS Safety Report 9426509 (Version 1)
Quarter: 2013Q3

REPORT INFORMATION
  Report Type: Spontaneous
  Country: US (occurrence: None)
  Receive Date: 20130729
  Receipt Date: 20130729
  Transmission Date: 20140515
  Serious: Yes (Hospitalization)
  Sender: FDA-Public Use
  Company Number: None

PATIENT
  Age: 47 Year
  Sex: Female

DRUGS (2)
  1. MONTELUKAST [Suspect]
     Indication: ASTHMA
     Dosage: SINCE AVAILABLE UNTIL NOW
  2. MONTELUKAST [Suspect]
     Dosage: SINCE AVAILABLE UNTIL NOW

REACTIONS (4)
  - Drug ineffective [None]
  - Product substitution issue [None]
  - Therapeutic response unexpected with drug substitution [None]
  - Dyspnoea [None]
